FAERS Safety Report 19988160 (Version 1)
Quarter: 2021Q4

REPORT INFORMATION
  Report Type: Spontaneous
  Country: TR (occurrence: TR)
  Receive Date: 20211022
  Receipt Date: 20211022
  Transmission Date: 20220303
  Serious: Yes (Life-Threatening, Hospitalization, Other)
  Sender: FDA-Public Use
  Company Number: TR-LUPIN PHARMACEUTICALS INC.-2021-20197

PATIENT
  Age: 35 Year
  Sex: Female

DRUGS (1)
  1. METFORMIN [Suspect]
     Active Substance: METFORMIN HYDROCHLORIDE
     Indication: Product used for unknown indication
     Dosage: 30 DOSAGE FORM (30 TABLETS OF 1000 MG)
     Route: 048

REACTIONS (5)
  - Lactic acidosis [Recovered/Resolved]
  - Suicide attempt [Unknown]
  - Loss of consciousness [Recovered/Resolved]
  - Toxicity to various agents [Recovered/Resolved]
  - Intentional overdose [Unknown]
